FAERS Safety Report 5246844-8 (Version None)
Quarter: 2007Q1

REPORT INFORMATION
  Report Type: 
  Country: None (occurrence: None)
  Receive Date: 20070226
  Receipt Date: 20070212
  Transmission Date: 20070707
  Serious: Yes (Hospitalization, Other)
  Sender: FDA-Public Use
  Company Number: US-ELI_LILLY_AND_COMPANY-US200601000857

PATIENT
  Age: 45 Year
  Sex: Female
  Weight: 98.866 kg

DRUGS (8)
  1. PAXIL [Concomitant]
     Dosage: 40 MG, EACH MORNING
     Route: 048
     Dates: end: 19990701
  2. PAXIL [Concomitant]
     Dosage: 20 MG, UNK
     Route: 048
     Dates: start: 19990701
  3. PAXIL [Concomitant]
     Dosage: 40 MG, UNK
     Route: 048
  4. ZIAC [Concomitant]
     Indication: HYPERTENSION
     Route: 048
  5. ZYPREXA [Suspect]
     Indication: SCHIZOAFFECTIVE DISORDER
     Dosage: 5 MG, 2/D
     Route: 048
     Dates: start: 19981001, end: 19990701
  6. ZYPREXA [Suspect]
     Dosage: 10 MG, EACH EVENING
     Route: 048
     Dates: start: 19990901, end: 20041015
  7. ZYPREXA [Suspect]
     Dosage: 15 MG, EACH EVENING
     Route: 048
  8. ZYPREXA [Suspect]
     Dosage: 20 MG, EACH EVENING
     Route: 048

REACTIONS (3)
  - CARDIAC ANEURYSM [None]
  - DIABETES MELLITUS NON-INSULIN-DEPENDENT [None]
  - WEIGHT INCREASED [None]
